FAERS Safety Report 8602190-3 (Version None)
Quarter: 2012Q3

REPORT INFORMATION
  Report Type: 
  Country: None (occurrence: None)
  Receive Date: 20120817
  Receipt Date: 20120808
  Transmission Date: 20120928
  Serious: Yes (Hospitalization)
  Sender: FDA-Public Use
  Company Number: CH-TEVA-353342ISR

PATIENT
  Age: 80 Year
  Sex: Male

DRUGS (13)
  1. TORSEMIDE [Suspect]
     Indication: ESSENTIAL HYPERTENSION
     Dosage: 5 MILLIGRAM DAILY;
     Route: 048
     Dates: start: 20100101
  2. NITRODERM [Concomitant]
     Dosage: 5 MILLIGRAM DAILY;
     Route: 062
     Dates: start: 20110725
  3. METOPROLOL TARTRATE [Concomitant]
     Dosage: 50 MILLIGRAM DAILY;
     Route: 048
  4. TRANSIPEG [Concomitant]
     Dosage: 2 DOSAGE FORMS DAILY;
     Route: 048
  5. LEVOTHYROXINE SODIUM [Concomitant]
     Dosage: .0214 MILLIGRAM DAILY;
     Route: 048
  6. SURMONTIL [Suspect]
     Indication: BIPOLAR DISORDER
     Dosage: 20 MILLIGRAM DAILY;
     Route: 048
     Dates: start: 20120312, end: 20120701
  7. BACTRIM DS [Suspect]
     Indication: URINARY TRACT INFECTION
     Dosage: 2 DOSAGE FORMS DAILY; 800 MG SMZ/ 160 MG TM TABLETS
     Route: 048
     Dates: start: 20120629, end: 20120705
  8. SYMFONA FORTE [Concomitant]
     Dosage: 120 MILLIGRAM DAILY;
     Route: 048
     Dates: start: 20110207
  9. PANTOPRAZOLE [Concomitant]
     Dosage: 20 MILLIGRAM DAILY;
     Route: 048
     Dates: start: 20120628
  10. CALCIUM D3 [Concomitant]
     Dosage: 1 DOSAGE FORMS DAILY;
     Route: 048
  11. LAMICTAL [Concomitant]
     Dosage: 200 MILLIGRAM DAILY;
     Route: 048
  12. PAROXETIN-MEPHA [Concomitant]
     Dosage: 20 MILLIGRAM DAILY;
     Route: 048
     Dates: start: 20101016
  13. PARAGOL [Concomitant]
     Dosage: 60 ML DAILY;
     Route: 048

REACTIONS (7)
  - URINARY TRACT INFECTION [None]
  - DEMENTIA [None]
  - RENAL FAILURE CHRONIC [None]
  - DEHYDRATION [None]
  - ANTICHOLINERGIC SYNDROME [None]
  - URINARY RETENTION [None]
  - DELIRIUM [None]
